FAERS Safety Report 6201875-6 (Version None)
Quarter: 2009Q2

REPORT INFORMATION
  Report Type: 
  Country: None (occurrence: None)
  Receive Date: 20090520
  Receipt Date: 20090507
  Transmission Date: 20091009
  Serious: No
  Sender: FDA-Public Use
  Company Number: 2009-196331-NL

PATIENT
  Sex: Female

DRUGS (2)
  1. REMERON [Suspect]
     Indication: ANXIETY
     Dosage: 7.5 MG DAILY
     Dates: start: 20090301
  2. BETA BLOCKER [Concomitant]

REACTIONS (2)
  - BLOOD PRESSURE DECREASED [None]
  - HEART RATE DECREASED [None]
